FAERS Safety Report 9174395 (Version 1)
Quarter: 2013Q1

REPORT INFORMATION
  Report Type: Spontaneous
  Country: FR (occurrence: FR)
  Receive Date: 20130320
  Receipt Date: 20130320
  Transmission Date: 20140127
  Serious: Yes (Other)
  Sender: FDA-Public Use
  Company Number: FR-JNJFOC-20130308275

PATIENT
  Age: 69 Year
  Sex: Male

DRUGS (5)
  1. XARELTO [Suspect]
     Indication: THROMBOSIS PROPHYLAXIS
     Route: 048
     Dates: start: 20130221, end: 20130226
  2. XARELTO [Suspect]
     Indication: KNEE ARTHROPLASTY
     Route: 048
     Dates: start: 20130221, end: 20130226
  3. INIPOMP [Concomitant]
     Route: 065
  4. SILODOSIN [Concomitant]
     Route: 065
  5. FEBUXOSTAT [Concomitant]
     Indication: GOUT
     Route: 065

REACTIONS (5)
  - Myalgia [Unknown]
  - Chills [Unknown]
  - General physical health deterioration [Unknown]
  - Pyrexia [Recovered/Resolved]
  - Urticaria [Unknown]
